FAERS Safety Report 7726828-8 (Version None)
Quarter: 2011Q3

REPORT INFORMATION
  Report Type: 
  Country: None (occurrence: None)
  Receive Date: 20110902
  Receipt Date: 20110816
  Transmission Date: 20111222
  Serious: Yes (Death, Other)
  Sender: FDA-Public Use
  Company Number: GB-GLAXOSMITHKLINE-B0743922A

PATIENT

DRUGS (3)
  1. METHOTREXATE [Suspect]
     Indication: BONE MARROW CONDITIONING REGIMEN
  2. BUSULFAN [Suspect]
     Indication: BONE MARROW CONDITIONING REGIMEN
  3. CYCLOPHOSPHAMIDE [Suspect]
     Indication: BONE MARROW CONDITIONING REGIMEN

REACTIONS (1)
  - VENOOCCLUSIVE DISEASE [None]
